FAERS Safety Report 10035659 (Version 1)
Quarter: 2014Q1

REPORT INFORMATION
  Report Type: Spontaneous
  Country: US (occurrence: None)
  Receive Date: 20140306
  Receipt Date: 20140306
  Transmission Date: 20141002
  Serious: Yes (Other)
  Sender: FDA-Public Use
  Company Number: 163-21880-12123142

PATIENT
  Age: 71 Year
  Sex: Male
  Weight: 65.32 kg

DRUGS (1)
  1. REVLIMID [Suspect]
     Indication: PLASMA CELL MYELOMA
     Dosage: 10 MG, 21 IN 28 D, PO?TEMPORARILY INTERRUPTED
     Route: 048
     Dates: start: 201208

REACTIONS (1)
  - Abscess oral [None]
